FAERS Safety Report 8198355-8 (Version None)
Quarter: 2012Q1

REPORT INFORMATION
  Report Type: 
  Country: None (occurrence: None)
  Receive Date: 20120227
  Receipt Date: 20120111
  Transmission Date: 20120608
  Serious: Yes (Hospitalization)
  Sender: FDA-Public Use
  Company Number: 342910

PATIENT
  Age: 65 Year
  Sex: Male

DRUGS (3)
  1. METFORMIN HCL [Concomitant]
  2. TRICOR /00090101/ (ADENOSINE) [Concomitant]
  3. VICTOZA [Suspect]
     Indication: TYPE 2 DIABETES MELLITUS
     Dosage: 1.6 MG, QD, SUBCUTANEOUS
     Route: 058
     Dates: start: 20111024, end: 20111225

REACTIONS (1)
  - PANCREATITIS ACUTE [None]
